FAERS Safety Report 6326405-X (Version None)
Quarter: 2009Q3

REPORT INFORMATION
  Report Type: 
  Country: None (occurrence: None)
  Receive Date: 20090825
  Receipt Date: 20071203
  Transmission Date: 20100115
  Serious: Yes (Hospitalization, Other)
  Sender: FDA-Public Use
  Company Number: US-ASTRAZENECA-2007UW11003

PATIENT
  Age: 13656 Day
  Sex: Female

DRUGS (18)
  1. SEROQUEL [Suspect]
     Indication: BIPOLAR DISORDER
     Dosage: 25MG-800MG DAILY
     Route: 048
     Dates: start: 19990806
  2. SEROQUEL [Suspect]
     Indication: SLEEP DISORDER
     Dosage: 25MG-800MG DAILY
     Route: 048
     Dates: start: 19990806
  3. SEROQUEL [Suspect]
     Indication: ANXIETY
     Dosage: 25MG-800MG DAILY
     Route: 048
     Dates: start: 19990806
  4. SEROQUEL [Suspect]
     Route: 048
  5. SEROQUEL [Suspect]
     Route: 048
  6. SEROQUEL [Suspect]
     Route: 048
  7. ZOLOFT [Concomitant]
     Dates: start: 20020701
  8. VICODIN [Concomitant]
     Route: 048
     Dates: start: 20020211
  9. NAPROXEN [Concomitant]
     Dates: start: 19990806
  10. PROZAC [Concomitant]
     Dosage: STRENGTH 20MG, 40MG, 80MG DOSE 20MG-80MG
     Route: 048
     Dates: start: 19990806
  11. TRAZODONE HCL [Concomitant]
     Dosage: STRENGTH 50MG, 100MG DOSE 50MG-100MG
     Route: 048
     Dates: start: 20060228
  12. VALIUM [Concomitant]
     Dosage: STRENGTH 2MG, 10MG DOSE 2MG-20MG DAILY
     Route: 048
  13. ZELNORM [Concomitant]
     Indication: CONSTIPATION
     Dosage: 6-12MG DAILY
     Route: 048
     Dates: start: 20051224
  14. NEURONTIN [Concomitant]
     Route: 048
  15. ATENOLOL [Concomitant]
     Route: 048
     Dates: start: 20060228
  16. FLEXERIL [Concomitant]
     Dosage: 1 TO 2 TABLET AS REQUIRED
     Route: 048
     Dates: start: 20060228
  17. AMBIEN [Concomitant]
     Dosage: 1 TO 2 TABLET AT NIGHT
     Route: 048
  18. PHENERGAN [Concomitant]
     Route: 048
     Dates: start: 20060130

REACTIONS (10)
  - DIABETES MELLITUS [None]
  - DIABETES MELLITUS INADEQUATE CONTROL [None]
  - DIABETIC GASTROPARESIS [None]
  - DIABETIC NEUROPATHY [None]
  - NEUROPATHY PERIPHERAL [None]
  - PANCREATITIS [None]
  - PANCREATITIS ACUTE [None]
  - PANCREATITIS CHRONIC [None]
  - TYPE 1 DIABETES MELLITUS [None]
  - TYPE 2 DIABETES MELLITUS [None]
